FAERS Safety Report 5515072-0 (Version None)
Quarter: 2007Q4

REPORT INFORMATION
  Report Type: 
  Country: None (occurrence: None)
  Receive Date: 20071113
  Receipt Date: 20061215
  Transmission Date: 20080405
  Serious: No
  Sender: FDA-Public Use
  Company Number: A0631736A

PATIENT
  Age: 76 Year
  Sex: Female

DRUGS (11)
  1. COREG [Suspect]
     Dosage: 12.5MG THREE TIMES PER DAY
     Route: 048
     Dates: start: 20040901
  2. LEVOTHYROXIN SODIUM [Suspect]
     Indication: DRUG USE FOR UNKNOWN INDICATION
     Route: 048
  3. COZAAR [Concomitant]
  4. ALTACE [Concomitant]
  5. HYDROCHLOROTHIAZIDE [Concomitant]
  6. NORVASC [Concomitant]
  7. POTASSIUM CHLORIDE [Concomitant]
  8. WARFARIN SODIUM [Concomitant]
  9. AMBIEN [Concomitant]
  10. SEROQUEL [Concomitant]
  11. UNISOM [Concomitant]

REACTIONS (1)
  - INSOMNIA [None]
